FAERS Safety Report 19679953 (Version 4)
Quarter: 2021Q3

REPORT INFORMATION
  Report Type: Report from Study
  Country: FR (occurrence: FR)
  Receive Date: 20210809
  Receipt Date: 20210825
  Transmission Date: 20211014
  Serious: Yes (Death, Other)
  Sender: FDA-Public Use
  Company Number: NVSC2021FR178852

PATIENT
  Age: 78 Year
  Sex: Male

DRUGS (4)
  1. RYDAPT [Suspect]
     Active Substance: MIDOSTAURIN
     Indication: ACUTE MYELOID LEUKAEMIA
     Dosage: 100 MG
     Route: 065
     Dates: start: 20210726, end: 20210803
  2. CYTARABINE. [Suspect]
     Active Substance: CYTARABINE
     Indication: ACUTE MYELOID LEUKAEMIA
     Dosage: 350 MG
     Route: 065
     Dates: start: 20210719, end: 20210725
  3. DAUNORUBICIN [Suspect]
     Active Substance: DAUNORUBICIN
     Indication: ACUTE MYELOID LEUKAEMIA
     Dosage: 102.5 MG
     Route: 065
     Dates: start: 20210719, end: 20210721
  4. PREDNISONE. [Concomitant]
     Active Substance: PREDNISONE
     Indication: SINUSITIS
     Dosage: 5 MG
     Route: 065
     Dates: start: 20210715, end: 20210719

REACTIONS (28)
  - Thrombocytopenia [Unknown]
  - Anuria [Unknown]
  - Gastrointestinal disorder [Unknown]
  - Venous thrombosis [Unknown]
  - Abdominal distension [Unknown]
  - Ileus paralytic [Unknown]
  - Febrile bone marrow aplasia [Unknown]
  - Pulmonary mass [Unknown]
  - Haemodynamic instability [Unknown]
  - Cell death [Unknown]
  - Cholestasis [Unknown]
  - Acute kidney injury [Unknown]
  - Gastrointestinal pain [Unknown]
  - Candida infection [Unknown]
  - Pathogen resistance [Unknown]
  - Septic shock [Fatal]
  - Nausea [Unknown]
  - Vomiting [Unknown]
  - Respiratory disorder [Unknown]
  - Neutropenic colitis [Fatal]
  - Staphylococcal infection [Unknown]
  - Shock [Unknown]
  - Hepatic mass [Unknown]
  - Stenotrophomonas infection [Unknown]
  - Diarrhoea [Unknown]
  - Sinusitis [Unknown]
  - Hepatobiliary disease [Unknown]
  - Pleural effusion [Unknown]

NARRATIVE: CASE EVENT DATE: 20210731
